FAERS Safety Report 11981588 (Version 1)
Quarter: 2016Q1

REPORT INFORMATION
  Report Type: Spontaneous
  Country: CN (occurrence: None)
  Receive Date: 20160128
  Receipt Date: 20160128
  Transmission Date: 20160526
  Serious: No
  Sender: FDA-Public Use
  Company Number: CN2016K0183LIT

PATIENT
  Age: 74 Year
  Sex: Female
  Weight: 53 kg

DRUGS (3)
  1. ESOMEPRAZOLE WORLD (ESOMEPRAZOLE) UNKNOWN [Suspect]
     Active Substance: ESOMEPRAZOLE
     Route: 041
  2. OMEPRAZOLE WORLD (OMEPRAZOLE) UNKNOWN [Suspect]
     Active Substance: OMEPRAZOLE
     Route: 045
     Dates: start: 20141028
  3. LANSOPRAZOLE WORLD (LANSOPRAZOLE) UNKNOWN [Suspect]
     Active Substance: LANSOPRAZOLE
     Indication: PROPHYLAXIS AGAINST GASTROINTESTINAL ULCER
     Route: 041
     Dates: start: 20141005

REACTIONS (12)
  - Drug ineffective [None]
  - Skin ulcer [None]
  - Small intestinal haemorrhage [None]
  - Acute kidney injury [None]
  - Cardiac failure [None]
  - Gastrointestinal haemorrhage [None]
  - Dermatitis exfoliative [None]
  - Infection [None]
  - Haemoptysis [None]
  - Respiratory failure [None]
  - Sputum increased [None]
  - Blister [None]

NARRATIVE: CASE EVENT DATE: 20141031
